FAERS Safety Report 7199192-3 (Version None)
Quarter: 2010Q4

REPORT INFORMATION
  Report Type: 
  Country: None (occurrence: None)
  Receive Date: 20101228
  Receipt Date: 20101214
  Transmission Date: 20110411
  Serious: Yes (Hospitalization)
  Sender: FDA-Public Use
  Company Number: PHHY2010GB16515

PATIENT
  Sex: Female

DRUGS (7)
  1. CLOZARIL [Suspect]
     Indication: PSYCHOTIC DISORDER
     Dosage: UNK
     Dates: start: 20010701
  2. CLOZARIL [Suspect]
     Dosage: 700 MG, UNK
     Route: 048
     Dates: start: 20080325
  3. OXYBUTYNIN [Concomitant]
     Dosage: UNK
  4. RISPERIDONE [Concomitant]
     Dosage: UNK
  5. ACETAMINOPHEN [Concomitant]
     Dosage: UNK
  6. RABEPRAZOLE SODIUM [Concomitant]
     Dosage: UNK
  7. FERROUS SULFATE TAB [Concomitant]
     Dosage: UNK

REACTIONS (3)
  - CHRONIC OBSTRUCTIVE PULMONARY DISEASE [None]
  - DIARRHOEA [None]
  - IRON DEFICIENCY ANAEMIA [None]
